FAERS Safety Report 14158840 (Version 2)
Quarter: 2017Q4

REPORT INFORMATION
  Report Type: Spontaneous
  Country: US (occurrence: US)
  Receive Date: 20171103
  Receipt Date: 20171220
  Transmission Date: 20180321
  Serious: No
  Sender: FDA-Public Use
  Company Number: US-ASTRAZENECA-2017SF10183

PATIENT
  Age: 696 Month
  Sex: Male
  Weight: 87.1 kg

DRUGS (4)
  1. BYDUREON [Suspect]
     Active Substance: EXENATIDE
     Indication: TYPE 2 DIABETES MELLITUS
     Route: 058
     Dates: start: 20171001
  2. TRESIBA [Concomitant]
     Active Substance: INSULIN DEGLUDEC
     Indication: TYPE 2 DIABETES MELLITUS
     Route: 058
     Dates: start: 20171001
  3. TRULICITY [Concomitant]
     Active Substance: DULAGLUTIDE
     Indication: TYPE 2 DIABETES MELLITUS
     Route: 058
     Dates: start: 2016
  4. FARXIGA [Suspect]
     Active Substance: DAPAGLIFLOZIN PROPANEDIOL
     Indication: TYPE 2 DIABETES MELLITUS
     Route: 048
     Dates: start: 2015, end: 201603

REACTIONS (18)
  - Injection site erythema [Unknown]
  - Injection site extravasation [Unknown]
  - Drug ineffective [Unknown]
  - Wrong technique in product usage process [Unknown]
  - Dysuria [Recovered/Resolved]
  - Glucose urine present [Recovered/Resolved]
  - Micturition urgency [Recovered/Resolved]
  - Feeling abnormal [Recovered/Resolved]
  - Blood glucose increased [Recovering/Resolving]
  - Injection site mass [Unknown]
  - Urinary tract disorder [Recovered/Resolved]
  - Urinary tract pain [Recovered/Resolved]
  - Pain [Recovered/Resolved]
  - Blood glucose abnormal [Unknown]
  - Incorrect dose administered [Unknown]
  - Urinary tract infection [Recovered/Resolved]
  - Product quality issue [Unknown]
  - Device issue [Unknown]

NARRATIVE: CASE EVENT DATE: 201602
